FAERS Safety Report 5141446-6 (Version None)
Quarter: 2006Q4

REPORT INFORMATION
  Report Type: 
  Country: None (occurrence: None)
  Receive Date: 20061101
  Receipt Date: 20061019
  Transmission Date: 20070319
  Serious: Yes (Other)
  Sender: FDA-Public Use
  Company Number: FR-JNJFOC-20050500958

PATIENT
  Sex: Female
  Weight: 65 kg

DRUGS (1)
  1. PLACEBO [Suspect]
     Indication: MIGRAINE
     Route: 048
     Dates: start: 20050111, end: 20050214

REACTIONS (3)
  - SYNOVIAL DISORDER [None]
  - TENDON DISORDER [None]
  - TENDON RUPTURE [None]
